FAERS Safety Report 9148737 (Version 1)
Quarter: 2013Q1

REPORT INFORMATION
  Report Type: Spontaneous
  Country: US (occurrence: None)
  Receive Date: 20130228
  Receipt Date: 20130228
  Transmission Date: 20140127
  Serious: No
  Sender: FDA-Public Use
  Company Number: None

PATIENT
  Age: 77 Year
  Sex: Female

DRUGS (1)
  1. LEVOTHYROXINE [Suspect]
     Indication: HYPOTHYROIDISM
     Dosage: LEVOTHYROXINE 75 MCG 1 DAILY BY MOUTH
     Route: 048
     Dates: start: 20130130, end: 20130227

REACTIONS (2)
  - Tinnitus [None]
  - Product quality issue [None]
